FAERS Safety Report 23397388 (Version 2)
Quarter: 2024Q1

REPORT INFORMATION
  Report Type: Spontaneous
  Country: CA (occurrence: CA)
  Receive Date: 20240112
  Receipt Date: 20240306
  Transmission Date: 20240409
  Serious: Yes (Other)
  Sender: FDA-Public Use
  Company Number: CA-PFIZER INC-202400007992

PATIENT
  Age: 59 Year
  Sex: Female

DRUGS (1)
  1. RUXIENCE [Suspect]
     Active Substance: RITUXIMAB-PVVR
     Indication: Granulomatosis with polyangiitis
     Dosage: 1 G, DAY 1 AND DAY 15
     Route: 042
     Dates: start: 20231005, end: 20231018

REACTIONS (1)
  - Tracheal dilatation [Unknown]

NARRATIVE: CASE EVENT DATE: 20230101
